FAERS Safety Report 23254480 (Version 1)
Quarter: 2023Q4

REPORT INFORMATION
  Report Type: Spontaneous
  Country: US (occurrence: US)
  Receive Date: 20231202
  Receipt Date: 20231202
  Transmission Date: 20240110
  Serious: No
  Sender: FDA-Public Use
  Company Number: US-PURDUE-USA-2023-0303946

PATIENT
  Sex: Female
  Weight: 95.2 kg

DRUGS (2)
  1. HYDROCODONE BITARTRATE [Suspect]
     Active Substance: HYDROCODONE BITARTRATE
     Indication: Product used for unknown indication
     Dosage: UNKNOWN
     Route: 065
     Dates: start: 2023
  2. HYDROCODONE BITARTRATE [Suspect]
     Active Substance: HYDROCODONE BITARTRATE
     Dosage: 1 DOSAGE FORM
     Route: 065
     Dates: start: 2023

REACTIONS (1)
  - Urticaria [Unknown]

NARRATIVE: CASE EVENT DATE: 20230101
